FAERS Safety Report 6873041-2 (Version None)
Quarter: 2010Q3

REPORT INFORMATION
  Report Type: 
  Country: None (occurrence: None)
  Receive Date: 20100723
  Receipt Date: 20081123
  Transmission Date: 20110219
  Serious: No
  Sender: FDA-Public Use
  Company Number: US-PFIZER INC-2008099210

PATIENT
  Sex: Female
  Weight: 70.31 kg

DRUGS (4)
  1. CHANTIX [Suspect]
     Indication: SMOKING CESSATION THERAPY
     Route: 048
     Dates: start: 20081111
  2. ANTIHYPERTENSIVES [Concomitant]
  3. PROZAC [Concomitant]
  4. GENERAL NUTRIENTS [Concomitant]

REACTIONS (2)
  - SENSORY DISTURBANCE [None]
  - URTICARIA [None]
